FAERS Safety Report 12761339 (Version 1)
Quarter: 2016Q3

REPORT INFORMATION
  Report Type: Other
  Country: TH (occurrence: TH)
  Receive Date: 20160920
  Receipt Date: 20160920
  Transmission Date: 20161109
  Serious: No
  Sender: FDA-Public Use
  Company Number: TH-LUPIN PHARMACEUTICALS INC.-2016-03325

PATIENT
  Age: 68 Year
  Sex: Female

DRUGS (1)
  1. CIPROFLOXACIN. [Suspect]
     Active Substance: CIPROFLOXACIN
     Indication: URINARY TRACT INFECTION
     Dosage: 1500 MG
     Route: 048

REACTIONS (1)
  - Sterile pyuria [Recovered/Resolved]
